FAERS Safety Report 8383596-7 (Version None)
Quarter: 2012Q2

REPORT INFORMATION
  Report Type: 
  Country: None (occurrence: None)
  Receive Date: 20120524
  Receipt Date: 20120515
  Transmission Date: 20120825
  Serious: Yes (Other)
  Sender: FDA-Public Use
  Company Number: US-ASTRAZENECA-2012SE22229

PATIENT
  Age: 77 Year
  Sex: Male

DRUGS (3)
  1. CRESTOR [Suspect]
     Route: 048
  2. NEXIUM [Concomitant]
  3. PRILOSEC [Suspect]
     Route: 048

REACTIONS (5)
  - MUSCULOSKELETAL STIFFNESS [None]
  - GAIT DISTURBANCE [None]
  - MYALGIA [None]
  - ULCER HAEMORRHAGE [None]
  - MUSCULAR WEAKNESS [None]
